FAERS Safety Report 20119556 (Version 2)
Quarter: 2021Q4

REPORT INFORMATION
  Report Type: Spontaneous
  Country: US (occurrence: US)
  Receive Date: 20211126
  Receipt Date: 20211224
  Transmission Date: 20220303
  Serious: Yes (Other)
  Sender: FDA-Public Use
  Company Number: ALC2021US006309

PATIENT
  Sex: Female

DRUGS (1)
  1. PROPARACAINE HYDROCHLORIDE [Suspect]
     Active Substance: PROPARACAINE HYDROCHLORIDE
     Indication: Product used for unknown indication
     Dosage: UNK
     Route: 047

REACTIONS (3)
  - Loss of consciousness [Recovered/Resolved]
  - Adverse reaction [Recovered/Resolved]
  - Cold sweat [Recovered/Resolved]
